FAERS Safety Report 9612637 (Version 1)
Quarter: 2013Q4

REPORT INFORMATION
  Report Type: Spontaneous
  Country: US (occurrence: None)
  Receive Date: 20131008
  Receipt Date: 20131008
  Transmission Date: 20140711
  Serious: Yes (Other)
  Sender: FDA-Public Use
  Company Number: UTC-038600

PATIENT
  Age: 47 Year
  Sex: Male
  Weight: 131.8 kg

DRUGS (2)
  1. REMODULIN [Suspect]
     Indication: COR PULMONALE CHRONIC
     Dosage: 48.96 UG/KG (0.034 UG/KG, 1 IN 1 MIN),SUBCUTANEOUS
     Route: 058
     Dates: start: 20130809
  2. REVATIO (SILDENAFIL) (UNKNOWN) [Concomitant]

REACTIONS (2)
  - Infusion site infection [None]
  - Staphylococcal infection [None]
